FAERS Safety Report 17165890 (Version 1)
Quarter: 2019Q4

REPORT INFORMATION
  Report Type: Spontaneous
  Country: US (occurrence: US)
  Receive Date: 20191217
  Receipt Date: 20191217
  Transmission Date: 20200122
  Serious: Yes (Other)
  Sender: FDA-Public Use
  Company Number: US-ASTRAZENECA-2019SF79388

PATIENT
  Sex: Male

DRUGS (4)
  1. CRESTOR [Suspect]
     Active Substance: ROSUVASTATIN CALCIUM
     Route: 048
  2. TRIAMTERENE AND HYDROCHLOROTHIAZIDE [Concomitant]
     Active Substance: HYDROCHLOROTHIAZIDE\TRIAMTERENE
     Route: 065
  3. NORVASC [Concomitant]
     Active Substance: AMLODIPINE BESYLATE
     Route: 065
  4. METHENAMINE HIPP [Concomitant]
     Route: 065

REACTIONS (5)
  - Blood creatine phosphokinase increased [Unknown]
  - Cerebrovascular accident [Unknown]
  - Low density lipoprotein increased [Unknown]
  - Movement disorder [Unknown]
  - Muscular weakness [Unknown]
